FAERS Safety Report 14945486 (Version 1)
Quarter: 2018Q2

REPORT INFORMATION
  Report Type: Spontaneous
  Country: FR (occurrence: FR)
  Receive Date: 20180529
  Receipt Date: 20180529
  Transmission Date: 20180711
  Serious: Yes (Other)
  Sender: FDA-Public Use
  Company Number: FR-AUROBINDO-AUR-APL-2018-026890

PATIENT
  Age: 83 Year
  Sex: Male
  Weight: 84 kg

DRUGS (7)
  1. PIPERACILLIN AND TAZOBACTAM [Suspect]
     Active Substance: PIPERACILLIN SODIUM\TAZOBACTAM SODIUM
     Indication: CELLULITIS
     Dosage: 12 GRAM
     Route: 042
     Dates: start: 20180115, end: 20180117
  2. ZYVOXID [Suspect]
     Active Substance: LINEZOLID
     Indication: CELLULITIS
     Dosage: UNK
     Route: 042
     Dates: start: 20180115, end: 20180117
  3. AMIKACINE                          /00391001/ [Suspect]
     Active Substance: AMIKACIN
     Indication: CELLULITIS
     Dosage: 1600 MILLIGRAM
     Route: 042
     Dates: start: 20180115, end: 20180117
  4. CALCIPARINE [Suspect]
     Active Substance: HEPARIN CALCIUM
     Indication: PRODUCT USED FOR UNKNOWN INDICATION
     Dosage: 1.2 MILLILITER
     Route: 058
     Dates: start: 20180109, end: 20180115
  5. HEPARINE SODIUM PANPHARMA [Suspect]
     Active Substance: HEPARIN SODIUM
     Indication: PRODUCT USED FOR UNKNOWN INDICATION
     Dosage: UNK
     Route: 042
     Dates: start: 20180116, end: 20180116
  6. PANTOPRAZOLE SODIUM. [Suspect]
     Active Substance: PANTOPRAZOLE SODIUM
     Indication: CELLULITIS
     Dosage: UNK
     Route: 042
     Dates: start: 20180111, end: 20180117
  7. MYCAMINE [Suspect]
     Active Substance: MICAFUNGIN SODIUM
     Indication: CELLULITIS
     Dosage: UNK
     Route: 042
     Dates: start: 20180115, end: 20180117

REACTIONS (1)
  - Thrombocytopenia [Unknown]

NARRATIVE: CASE EVENT DATE: 20180116
